FAERS Safety Report 23752419 (Version 2)
Quarter: 2024Q3

REPORT INFORMATION
  Report Type: Report from Study
  Country: ZA (occurrence: ZA)
  Receive Date: 20240417
  Receipt Date: 20240702
  Transmission Date: 20241016
  Serious: No
  Sender: MYLAN
  Company Number: ZA-MYLANLABS-2024M1032341

PATIENT
  Age: 41 Week
  Sex: Female
  Weight: 2.8 kg

DRUGS (1)
  1. DOLUTEGRAVIR\LAMIVUDINE\TENOFOVIR DISOPROXIL FUMARATE [Suspect]
     Active Substance: DOLUTEGRAVIR\LAMIVUDINE\TENOFOVIR DISOPROXIL FUMARATE
     Indication: HIV infection CDC Group III
     Dosage: 650 MILLIGRAM, QD
     Route: 048

REACTIONS (1)
  - Foetal exposure during pregnancy [Unknown]
